FAERS Safety Report 5298623-3 (Version None)
Quarter: 2007Q2

REPORT INFORMATION
  Report Type: 
  Country: None (occurrence: None)
  Receive Date: 20070417
  Receipt Date: 20070405
  Transmission Date: 20071010
  Serious: Yes (Other)
  Sender: FDA-Public Use
  Company Number: PHEH2007US04432

PATIENT
  Sex: Female

DRUGS (1)
  1. AREDIA [Suspect]
     Indication: BONE NEOPLASM MALIGNANT

REACTIONS (10)
  - ANHEDONIA [None]
  - ANXIETY [None]
  - BONE DISORDER [None]
  - DEFORMITY [None]
  - EMOTIONAL DISTRESS [None]
  - ORAL INTAKE REDUCED [None]
  - OSTEONECROSIS [None]
  - PAIN [None]
  - SURGERY [None]
  - SWELLING [None]
